FAERS Safety Report 9846851 (Version 2)
Quarter: 2014Q1

REPORT INFORMATION
  Report Type: Spontaneous
  Country: FI (occurrence: FI)
  Receive Date: 20140127
  Receipt Date: 20140210
  Transmission Date: 20141002
  Serious: Yes (Other)
  Sender: FDA-Public Use
  Company Number: FI-PFIZER INC-2014018118

PATIENT
  Age: 15 Year
  Sex: Male
  Weight: 101 kg

DRUGS (10)
  1. LYRICA [Suspect]
     Dosage: UNK
  2. ZELDOX [Concomitant]
     Dosage: UNK
     Dates: end: 201305
  3. SEROQUEL [Concomitant]
     Dosage: UNK
     Dates: start: 20130814, end: 20131007
  4. ABILIFY [Concomitant]
     Dosage: UNK
  5. RISPERDAL [Concomitant]
     Dosage: UNK
  6. SOLIAN [Concomitant]
     Dosage: UNK
  7. SOLIAN [Concomitant]
     Dosage: 800 MG, DAILY
  8. IPSATOL [Concomitant]
     Dosage: UNK
  9. AKINETON [Concomitant]
     Dosage: UNK
  10. ANKSILON [Concomitant]
     Dosage: UNK

REACTIONS (1)
  - Drug abuse [Unknown]
